FAERS Safety Report 8374226-9 (Version None)
Quarter: 2012Q2

REPORT INFORMATION
  Report Type: 
  Country: None (occurrence: None)
  Receive Date: 20120518
  Receipt Date: 20120518
  Transmission Date: 20120825
  Serious: Yes (Other)
  Sender: FDA-Public Use
  Company Number: None

PATIENT
  Age: 59 Year
  Sex: Female
  Weight: 94.8018 kg

DRUGS (1)
  1. CYMBALTA [Suspect]
     Indication: DEPRESSION
     Dosage: 60 MG ONCE DAILY PO
     Route: 048
     Dates: start: 20120220, end: 20120427

REACTIONS (11)
  - APATHY [None]
  - CONDITION AGGRAVATED [None]
  - ANXIETY [None]
  - INSOMNIA [None]
  - ANGER [None]
  - WEIGHT INCREASED [None]
  - DEPRESSION [None]
  - AGGRESSION [None]
  - RESTLESSNESS [None]
  - CRYING [None]
  - IRRITABILITY [None]
